FAERS Safety Report 7757382-2 (Version None)
Quarter: 2011Q3

REPORT INFORMATION
  Report Type: 
  Country: None (occurrence: None)
  Receive Date: 20110916
  Receipt Date: 20110826
  Transmission Date: 20111222
  Serious: Yes (Life-Threatening, Hospitalization, Other)
  Sender: FDA-Public Use
  Company Number: JP-CEPHALON-2011004921

PATIENT
  Age: 75 Year
  Sex: Female
  Weight: 39 kg

DRUGS (7)
  1. SULFAMETHOXAZOLE AND TRIMETHOPRIM [Concomitant]
  2. WARFARIN SODIUM [Concomitant]
  3. TREANDA [Suspect]
     Indication: B-CELL LYMPHOMA
     Route: 042
     Dates: start: 20110201, end: 20110202
  4. VORICONAZOLE [Concomitant]
  5. AMIODARONE HYDROCHLORIDE [Concomitant]
  6. TREANDA [Suspect]
     Route: 042
     Dates: start: 20110301, end: 20110301
  7. ACYCLOVIR [Concomitant]

REACTIONS (5)
  - LYMPHOCYTE COUNT DECREASED [None]
  - NEUTROPHIL COUNT DECREASED [None]
  - CYTOMEGALOVIRUS TEST POSITIVE [None]
  - BRADYCARDIA [None]
  - PLATELET COUNT DECREASED [None]
